APPROVED DRUG PRODUCT: CLOFARABINE
Active Ingredient: CLOFARABINE
Strength: 20MG/20ML (1MG/ML)
Dosage Form/Route: SOLUTION;INTRAVENOUS
Application: A213461 | Product #001 | TE Code: AP
Applicant: MEITHEAL PHARMACEUTICALS INC
Approved: Oct 23, 2020 | RLD: No | RS: Yes | Type: RX